FAERS Safety Report 12394389 (Version 2)
Quarter: 2016Q3

REPORT INFORMATION
  Report Type: Spontaneous
  Country: US (occurrence: US)
  Receive Date: 20160523
  Receipt Date: 20160811
  Transmission Date: 20161109
  Serious: Yes (Other)
  Sender: FDA-Public Use
  Company Number: US-BAYER-2016-098805

PATIENT
  Age: 43 Year
  Sex: Female
  Weight: 76.64 kg

DRUGS (1)
  1. MIRENA [Suspect]
     Active Substance: LEVONORGESTREL
     Indication: MENORRHAGIA
     Dosage: 20 MCG/24HR, CONT
     Route: 015
     Dates: start: 20160303, end: 20160503

REACTIONS (8)
  - Uterine perforation [Recovered/Resolved]
  - Constipation [Recovered/Resolved]
  - Weight decreased [Recovered/Resolved]
  - Device difficult to use [None]
  - Eating disorder [Recovered/Resolved]
  - Pelvic pain [Recovered/Resolved]
  - Genital haemorrhage [Recovered/Resolved]
  - Uterine cervix stenosis [Recovered/Resolved]

NARRATIVE: CASE EVENT DATE: 2016
